FAERS Safety Report 7104727-2 (Version None)
Quarter: 2010Q4

REPORT INFORMATION
  Report Type: 
  Country: None (occurrence: None)
  Receive Date: 20101116
  Receipt Date: 20101112
  Transmission Date: 20110411
  Serious: Yes (Hospitalization)
  Sender: FDA-Public Use
  Company Number: US-SHIRE-SPV1-2010-01972

PATIENT
  Sex: Male

DRUGS (4)
  1. VYVANSE [Suspect]
     Indication: ATTENTION DEFICIT/HYPERACTIVITY DISORDER
     Dosage: 60 MG, 1X/DAY:QD
     Route: 048
     Dates: start: 20090101, end: 20100101
  2. VYVANSE [Suspect]
     Dosage: 20 MG, 1X/DAY:QD
     Dates: start: 20080101, end: 20090101
  3. VYVANSE [Suspect]
     Dosage: 30 MG, 1X/DAY:QD
     Route: 048
  4. ZOLOFT [Suspect]
     Indication: FAMILY STRESS
     Dosage: UNK
     Route: 048
     Dates: start: 20100101, end: 20100901

REACTIONS (2)
  - AGGRESSION [None]
  - DRUG INTERACTION [None]
